FAERS Safety Report 7003063-2 (Version None)
Quarter: 2010Q3

REPORT INFORMATION
  Report Type: 
  Country: None (occurrence: None)
  Receive Date: 20100920
  Receipt Date: 20091207
  Transmission Date: 20110219
  Serious: No
  Sender: FDA-Public Use
  Company Number: US-ASTRAZENECA-2009SE30497

PATIENT
  Age: 76 Year
  Sex: Female

DRUGS (2)
  1. SEROQUEL XR [Suspect]
     Indication: DEPRESSION
     Dosage: TOTAL DAILY DOSE 50 MG, DOSE FREQUENCY BID
     Route: 048
     Dates: start: 20091001, end: 20091209
  2. EFFEXOR [Concomitant]
     Indication: DEPRESSION
     Dosage: BID
     Route: 048

REACTIONS (5)
  - CHILLS [None]
  - CONCUSSION [None]
  - DIZZINESS [None]
  - FALL [None]
  - TREMOR [None]
